FAERS Safety Report 21203504 (Version 5)
Quarter: 2022Q3

REPORT INFORMATION
  Report Type: Report from Study
  Country: CN (occurrence: CN)
  Receive Date: 20220811
  Receipt Date: 20220920
  Transmission Date: 20221027
  Serious: Yes (Hospitalization)
  Sender: FDA-Public Use
  Company Number: CN-PFIZER INC-PV202200038913

PATIENT
  Age: 37 Year
  Sex: Male
  Weight: 75 kg

DRUGS (12)
  1. AVIBACTAM SODIUM\CEFTAZIDIME [Suspect]
     Active Substance: AVIBACTAM SODIUM\CEFTAZIDIME
     Indication: Pneumonia
     Dosage: 2.5 G, EVERY 8 HOURS
     Route: 041
     Dates: start: 20220726, end: 20220803
  2. ZYVOX [Suspect]
     Active Substance: LINEZOLID
     Indication: Pneumonia
     Dosage: 600 MG, EVERY 12 HOURS
     Route: 041
     Dates: start: 20220726, end: 20220803
  3. AMIKACIN SULFATE [Concomitant]
     Active Substance: AMIKACIN SULFATE
     Dosage: UNK
     Dates: start: 20220726, end: 20220728
  4. AMLODIPINE BESYLATE [Concomitant]
     Active Substance: AMLODIPINE BESYLATE
     Dosage: 5 MG, 1X/DAY
     Route: 048
     Dates: start: 20220720
  5. CHLORHEXIDINE [Concomitant]
     Active Substance: CHLORHEXIDINE
     Dosage: COMPOUND CHLORHEXIDINE GARGLE, FOR EXTERNAL USE ONLY CONTAIN GARGLE, ML, 2X/WEEK
     Dates: start: 20220722
  6. MAGNESIUM ISOGLYCYRRHIZINATE [Concomitant]
     Active Substance: MAGNESIUM ISOGLYCYRRHIZINATE
     Dosage: 200 MG, 1X/DAY, IVGTT
     Route: 042
     Dates: start: 20220722
  7. GLUTATHIONE [Concomitant]
     Active Substance: GLUTATHIONE
     Dosage: 1.2 G, 1X/DAY, IVGTT
     Route: 042
     Dates: start: 20220722
  8. MONTMORILLONITE [Concomitant]
     Active Substance: MONTMORILLONITE
     Dosage: POWDER, 3 G, 3X/DAY
     Route: 048
     Dates: start: 20220726
  9. BERBERINE [Concomitant]
     Active Substance: BERBERINE
     Dosage: 0.3 G, 3X/DAY
     Route: 048
     Dates: start: 20220726
  10. URAPIDIL HYDROCHLORIDE [Concomitant]
     Active Substance: URAPIDIL HYDROCHLORIDE
     Dosage: 200 MG, 1X/DAY, IVGTT
     Route: 042
     Dates: start: 20220720, end: 20220722
  11. FUROSEMIDE [Concomitant]
     Active Substance: FUROSEMIDE
     Dosage: 40 MG, 1X/DAY
     Route: 042
     Dates: start: 20220720, end: 20220720
  12. CHLORTETRACYCLINE HYDROCHLORIDE [Concomitant]
     Active Substance: CHLORTETRACYCLINE HYDROCHLORIDE
     Dosage: 2 G, 1X/DAY
     Route: 061
     Dates: start: 20220721, end: 20220721

REACTIONS (2)
  - Hepatic function abnormal [Recovered/Resolved]
  - Condition aggravated [Recovered/Resolved]

NARRATIVE: CASE EVENT DATE: 20220803
